FAERS Safety Report 17071722 (Version 3)
Quarter: 2021Q3

REPORT INFORMATION
  Report Type: Spontaneous
  Country: US (occurrence: US)
  Receive Date: 20191125
  Receipt Date: 20210719
  Transmission Date: 20211014
  Serious: No
  Sender: FDA-Public Use
  Company Number: US-PFIZER INC-2019508925

PATIENT
  Age: 70 Year
  Sex: Male

DRUGS (1)
  1. LYRICA [Suspect]
     Active Substance: PREGABALIN
     Indication: DIABETIC NEUROPATHY
     Dosage: 150 MG, 3X/DAY (TAKE ONE CAPSULE BY MOUTH THREE TIMES A DAY; 270 CAPSULES)
     Route: 048

REACTIONS (2)
  - Off label use [Unknown]
  - Nasopharyngitis [Unknown]
